FAERS Safety Report 18844255 (Version 1)
Quarter: 2021Q1

REPORT INFORMATION
  Report Type: Report from Study
  Country: IT (occurrence: IT)
  Receive Date: 20210203
  Receipt Date: 20210203
  Transmission Date: 20210419
  Serious: Yes (Other)
  Sender: FDA-Public Use
  Company Number: IT-EXELIXIS-CABO-20026999

PATIENT
  Age: 79 Year
  Sex: Female
  Weight: 62 kg

DRUGS (5)
  1. NORVASC [Concomitant]
     Active Substance: AMLODIPINE BESYLATE
  2. CABOMETYX [Suspect]
     Active Substance: CABOZANTINIB S-MALATE
     Indication: HEPATOCELLULAR CARCINOMA
     Dosage: 60 MG, QD
     Route: 048
     Dates: start: 20191108, end: 20200111
  3. SEDITAL [Concomitant]
  4. PANTORC [Concomitant]
     Active Substance: PANTOPRAZOLE SODIUM
  5. TRIATEC [Concomitant]

REACTIONS (1)
  - Palmar-plantar erythrodysaesthesia syndrome [Recovered/Resolved with Sequelae]

NARRATIVE: CASE EVENT DATE: 20200102
